FAERS Safety Report 9812818 (Version 2)
Quarter: 2014Q1

REPORT INFORMATION
  Report Type: Spontaneous
  Country: US (occurrence: US)
  Receive Date: 20140113
  Receipt Date: 20140116
  Transmission Date: 20141002
  Serious: No
  Sender: FDA-Public Use
  Company Number: US-PFIZER INC-2014007293

PATIENT
  Age: 80 Year
  Sex: Male
  Weight: 81.63 kg

DRUGS (6)
  1. LYRICA [Suspect]
     Indication: NEUROPATHY PERIPHERAL
     Dosage: 40 MG, 3X/DAY
     Route: 048
     Dates: end: 2013
  2. LYRICA [Suspect]
     Dosage: 100 MG, 3X/DAY
     Route: 048
     Dates: start: 20130912
  3. LYRICA [Suspect]
     Dosage: UNK
  4. GABAPENTIN [Concomitant]
     Dosage: UNK
  5. BABY ASPIRIN [Concomitant]
     Indication: PAIN
     Dosage: UNK
  6. OXYCONTIN [Concomitant]
     Indication: PAIN IN EXTREMITY
     Dosage: UNK

REACTIONS (4)
  - Intentional drug misuse [Unknown]
  - Drug effect incomplete [Unknown]
  - Platelet count decreased [Unknown]
  - Blood cholesterol increased [Unknown]
